FAERS Safety Report 7714803-9 (Version None)
Quarter: 2011Q3

REPORT INFORMATION
  Report Type: 
  Country: None (occurrence: None)
  Receive Date: 20110822
  Receipt Date: 20110727
  Transmission Date: 20111222
  Serious: Yes (Life-Threatening, Other)
  Sender: FDA-Public Use
  Company Number: IND1-US-2011-0032

PATIENT

DRUGS (3)
  1. ANTIBIOTICS (ANTIBIOTICS) [Concomitant]
  2. INDOMETHACIN [Suspect]
     Indication: TOCOLYSIS
     Dosage: UNKNOWN (WITHIN 2 WEEKS BEFORE DELIVERY), TRANSPLACENTAL
     Route: 064
  3. MAGNESIUM SULFATE (MAGNESIUM SULFATE) (MAGNESIUM SULFATE) [Concomitant]

REACTIONS (2)
  - NECROTISING ENTEROCOLITIS NEONATAL [None]
  - MATERNAL DRUGS AFFECTING FOETUS [None]
